FAERS Safety Report 6158699-8 (Version None)
Quarter: 2009Q2

REPORT INFORMATION
  Report Type: 
  Country: None (occurrence: None)
  Receive Date: 20090417
  Receipt Date: 20090407
  Transmission Date: 20091009
  Serious: Yes (Hospitalization)
  Sender: FDA-Public Use
  Company Number: A0776698A

PATIENT
  Sex: Female

DRUGS (6)
  1. WELLBUTRIN [Suspect]
     Indication: DEPRESSION
     Dosage: 150MG PER DAY
     Dates: start: 20090107
  2. CARBOLITHIUM [Suspect]
     Indication: DEPRESSION
     Dosage: 300MG PER DAY
     Route: 048
     Dates: start: 20090107, end: 20090203
  3. TOFRANIL [Concomitant]
  4. TRITTICO [Concomitant]
  5. PAROXETINA [Concomitant]
  6. EFFEXOR [Concomitant]

REACTIONS (4)
  - ERYTHEMA [None]
  - FACE OEDEMA [None]
  - LOCALISED OEDEMA [None]
  - SKIN REACTION [None]
